FAERS Safety Report 8515709-8 (Version None)
Quarter: 2012Q3

REPORT INFORMATION
  Report Type: 
  Country: None (occurrence: None)
  Receive Date: 20120717
  Receipt Date: 20120712
  Transmission Date: 20120928
  Serious: Yes (Other)
  Sender: FDA-Public Use
  Company Number: PHHY2012BR060393

PATIENT
  Sex: Female

DRUGS (1)
  1. RASILEZ AMLO [Suspect]
     Dosage: UNK

REACTIONS (3)
  - SYSTEMIC LUPUS ERYTHEMATOSUS [None]
  - FALL [None]
  - PAIN [None]
